FAERS Safety Report 17570210 (Version 1)
Quarter: 2020Q1

REPORT INFORMATION
  Report Type: Spontaneous
  Country: RU (occurrence: RU)
  Receive Date: 20200323
  Receipt Date: 20200323
  Transmission Date: 20200409
  Serious: Yes (Hospitalization, Other)
  Sender: FDA-Public Use
  Company Number: RU-ADVANZ PHARMA-202003001749

PATIENT

DRUGS (3)
  1. ZONEGRAN [Suspect]
     Active Substance: ZONISAMIDE
     Indication: EPILEPSY
     Dosage: 25 MG, QD
     Route: 048
     Dates: start: 201909
  2. ZONEGRAN [Suspect]
     Active Substance: ZONISAMIDE
     Dosage: 100 MG, QD, CAPSULE
     Route: 048
     Dates: start: 202002, end: 202003
  3. ZONEGRAN [Suspect]
     Active Substance: ZONISAMIDE
     Dosage: DOSE AND FREQUENCY UNKNOWN (GRADUAL UP TITRATION)
     Route: 048

REACTIONS (3)
  - Epilepsy [Recovering/Resolving]
  - Headache [Unknown]
  - Product quality issue [Recovering/Resolving]

NARRATIVE: CASE EVENT DATE: 202002
